FAERS Safety Report 21909598 (Version 1)
Quarter: 2023Q1

REPORT INFORMATION
  Report Type: Spontaneous
  Country: US (occurrence: None)
  Receive Date: 20230125
  Receipt Date: 20230125
  Transmission Date: 20230417
  Serious: No
  Sender: FDA-Public Use
  Company Number: None

PATIENT
  Sex: Female

DRUGS (2)
  1. STELARA [Suspect]
     Active Substance: USTEKINUMAB
     Indication: Crohn^s disease
     Dosage: OTHER FREQUENCY : EVERY 7 WEEKS;?
     Route: 058
     Dates: start: 20211013
  2. STELARA [Suspect]
     Active Substance: USTEKINUMAB
     Indication: Rectal haemorrhage

REACTIONS (1)
  - Drug ineffective [None]
